FAERS Safety Report 20098048 (Version 4)
Quarter: 2021Q4

REPORT INFORMATION
  Report Type: Spontaneous
  Country: TH (occurrence: TH)
  Receive Date: 20211122
  Receipt Date: 20211130
  Transmission Date: 20220304
  Serious: Yes (Hospitalization, Other)
  Sender: FDA-Public Use
  Company Number: TH-LUNDBECK-DKLU3041130

PATIENT
  Sex: Female

DRUGS (5)
  1. ESCITALOPRAM OXALATE [Interacting]
     Active Substance: ESCITALOPRAM OXALATE
     Indication: Major depression
     Dosage: UNK
     Route: 065
  2. VORTIOXETINE [Interacting]
     Active Substance: VORTIOXETINE
     Indication: Major depression
     Dosage: UNK
     Route: 065
  3. LAMOTRIGINE [Interacting]
     Active Substance: LAMOTRIGINE
     Indication: Major depression
     Route: 065
  4. BUPROPION [Interacting]
     Active Substance: BUPROPION
     Indication: Major depression
     Route: 065
  5. LURASIDONE [Interacting]
     Active Substance: LURASIDONE
     Indication: Major depression
     Route: 065

REACTIONS (7)
  - Toxic encephalopathy [Unknown]
  - Pneumonia aspiration [Unknown]
  - Overdose [Unknown]
  - Inhibitory drug interaction [Unknown]
  - Rhabdomyolysis [Unknown]
  - Serotonin syndrome [Unknown]
  - Electrocardiogram QT prolonged [Recovered/Resolved]
